FAERS Safety Report 17610390 (Version 5)
Quarter: 2021Q4

REPORT INFORMATION
  Report Type: Spontaneous
  Country: US (occurrence: US)
  Receive Date: 20200401
  Receipt Date: 20211124
  Transmission Date: 20220303
  Serious: No
  Sender: FDA-Public Use
  Company Number: US-PFIZER INC-2019276487

PATIENT
  Age: 83 Year
  Sex: Female
  Weight: 79.38 kg

DRUGS (5)
  1. SKELAXIN [Suspect]
     Active Substance: METAXALONE
     Indication: Fibromyalgia
     Dosage: 800 MG, UNK
  2. SKELAXIN [Suspect]
     Active Substance: METAXALONE
     Indication: Arthritis
     Dosage: UNK
  3. SKELAXIN [Suspect]
     Active Substance: METAXALONE
     Indication: Muscle disorder
     Dosage: UNK
  4. SKELAXIN [Suspect]
     Active Substance: METAXALONE
     Indication: Muscle spasms
     Dosage: UNK
  5. DETROL LA [Suspect]
     Active Substance: TOLTERODINE TARTRATE
     Indication: Bladder disorder
     Dosage: 4 MG, 1X/DAY
     Route: 048

REACTIONS (7)
  - Renal disorder [Unknown]
  - Tremor [Unknown]
  - Body height decreased [Unknown]
  - Chronic disease [Unknown]
  - Hypertension [Unknown]
  - Impaired driving ability [Unknown]
  - Mobility decreased [Unknown]
